FAERS Safety Report 25778182 (Version 2)
Quarter: 2025Q4

REPORT INFORMATION
  Report Type: Spontaneous
  Country: US (occurrence: US)
  Receive Date: 20250909
  Receipt Date: 20251014
  Transmission Date: 20260117
  Serious: No
  Sender: IPSEN BIOPHARMACEUTICALS, INC.
  Company Number: US-IPSEN Group, Research and Development-2025-21947

PATIENT
  Age: 28 Year
  Sex: Female
  Weight: 81.65 kg

DRUGS (6)
  1. SOMATULINE DEPOT [Suspect]
     Active Substance: LANREOTIDE ACETATE
     Indication: Acromegaly
     Dosage: UNDER THE SKIN
     Route: 058
  2. SOMATULINE DEPOT [Suspect]
     Active Substance: LANREOTIDE ACETATE
     Dosage: INJECT 60 MG JUST UNDER THE SKIN,?SOMATULINE DEPOT 60 MG/0.2 ML PFS.
     Route: 058
  3. SOMAVERT [Concomitant]
     Active Substance: PEGVISOMANT
     Dosage: 20 MG VIAL
  4. ALBUTEROL SULFATE [Concomitant]
     Active Substance: ALBUTEROL SULFATE
  5. NAPROXEN [Concomitant]
     Active Substance: NAPROXEN
  6. CYMBALTA [Concomitant]
     Active Substance: DULOXETINE HYDROCHLORIDE

REACTIONS (4)
  - Visual impairment [Unknown]
  - Nausea [Unknown]
  - Vomiting [Unknown]
  - Nausea [Unknown]
